FAERS Safety Report 10051643 (Version 2)
Quarter: 2014Q2

REPORT INFORMATION
  Report Type: Spontaneous
  Country: US (occurrence: None)
  Receive Date: 20140331
  Receipt Date: 20140507
  Transmission Date: 20141212
  Serious: Yes (Hospitalization)
  Sender: FDA-Public Use
  Company Number: US-000846

PATIENT
  Age: 56 Year
  Sex: Female
  Weight: 58.97 kg

DRUGS (10)
  1. GATTEX [Suspect]
     Indication: SHORT-BOWEL SYNDROME
     Route: 058
     Dates: start: 20130919, end: 20131230
  2. LOMOTIL /00034001/ [Concomitant]
  3. LOPERAMIDE [Concomitant]
  4. CODEINE SULFATE [Concomitant]
  5. LOTRONEX /01482801/ [Concomitant]
  6. ATIVAN [Concomitant]
  7. MULTIVITAMINS [Concomitant]
  8. ALBUTEROL /00139501/ [Concomitant]
  9. SOLUTIONS FOR PARENTERAL NUTRITION [Concomitant]
  10. CAMPHORATED TINCTURE OF OPIUM [Concomitant]

REACTIONS (8)
  - Influenza like illness [None]
  - Diarrhoea [None]
  - Drug dose omission [None]
  - Incorrect dose administered [None]
  - Constipation [None]
  - Respiratory disorder [None]
  - Abdominal pain [None]
  - Fatigue [None]
